FAERS Safety Report 24086472 (Version 2)
Quarter: 2025Q2

REPORT INFORMATION
  Report Type: Report from Study
  Country: CO (occurrence: CO)
  Receive Date: 20240712
  Receipt Date: 20250612
  Transmission Date: 20250716
  Serious: Yes (Other)
  Sender: ABBVIE
  Company Number: CO-ABBVIE-5837100

PATIENT
  Age: 28 Year
  Sex: Female
  Weight: 62 kg

DRUGS (1)
  1. SKYRIZI [Suspect]
     Active Substance: RISANKIZUMAB-RZAA
     Indication: Psoriasis
     Dosage: FORM STRENGTH: 150MG
     Route: 058
     Dates: start: 20230405, end: 20250220

REACTIONS (5)
  - Umbilical hernia [Recovering/Resolving]
  - Procedural pain [Recovered/Resolved]
  - Abdominal pain [Recovering/Resolving]
  - Poor quality sleep [Unknown]
  - Scar [Unknown]

NARRATIVE: CASE EVENT DATE: 20230101
